FAERS Safety Report 10083517 (Version 1)
Quarter: 2014Q2

REPORT INFORMATION
  Report Type: Spontaneous
  Country: US (occurrence: US)
  Receive Date: 20140417
  Receipt Date: 20140417
  Transmission Date: 20141212
  Serious: No
  Sender: FDA-Public Use
  Company Number: US-TEVA-475699USA

PATIENT
  Age: 25 Year
  Sex: Female
  Weight: 52.21 kg

DRUGS (2)
  1. PLAN B ONE-STEP [Suspect]
     Indication: POST COITAL CONTRACEPTION
     Dosage: 1.5 MILLIGRAM DAILY;
     Route: 048
     Dates: start: 20140409, end: 20140409
  2. PLAN B ONE-STEP [Suspect]
     Dosage: 1.5 MILLIGRAM DAILY;
     Route: 048
     Dates: start: 20140409, end: 20140409

REACTIONS (5)
  - Urinary tract infection [Unknown]
  - Blood pressure increased [Unknown]
  - Tremor [Unknown]
  - Blood urine present [Unknown]
  - Intentional overdose [Unknown]
